FAERS Safety Report 6523945-5 (Version None)
Quarter: 2009Q4

REPORT INFORMATION
  Report Type: 
  Country: None (occurrence: None)
  Receive Date: 20091230
  Receipt Date: 20091230
  Transmission Date: 20100525
  Serious: Yes (Disabling)
  Sender: FDA-Public Use
  Company Number: None

PATIENT
  Age: 79 Year
  Sex: Female

DRUGS (4)
  1. PLAVIX [Suspect]
  2. LORATADINE [Suspect]
  3. PREVACID [Suspect]
  4. ZOSYN [Suspect]

REACTIONS (4)
  - DEVICE CONNECTION ISSUE [None]
  - DRUG DOSE OMISSION [None]
  - MEDICATION ERROR [None]
  - WRONG TECHNIQUE IN DRUG USAGE PROCESS [None]
